FAERS Safety Report 19968727 (Version 1)
Quarter: 2021Q4

REPORT INFORMATION
  Report Type: Spontaneous
  Country: US (occurrence: US)
  Receive Date: 20211019
  Receipt Date: 20211019
  Transmission Date: 20220303
  Serious: Yes (Death, Other)
  Sender: FDA-Public Use
  Company Number: US-UNITED THERAPEUTICS-UNT-2021-020721

PATIENT
  Age: 30 Year
  Sex: Male

DRUGS (2)
  1. REMODULIN [Suspect]
     Active Substance: TREPROSTINIL
     Indication: Pulmonary arterial hypertension
     Dosage: UNK, CONTINUING
     Route: 058
  2. BOSENTAN [Suspect]
     Active Substance: BOSENTAN
     Indication: Pulmonary arterial hypertension
     Dosage: UNK
     Route: 065

REACTIONS (8)
  - Pericardial effusion [Fatal]
  - Cardiac tamponade [Fatal]
  - Hypoxia [Unknown]
  - Dyspnoea [Unknown]
  - Pyrexia [Unknown]
  - Blood pressure systolic inspiratory decreased [Unknown]
  - Hypotension [Unknown]
  - Hypervolaemia [Unknown]
